FAERS Safety Report 20654491 (Version 1)
Quarter: 2022Q1

REPORT INFORMATION
  Report Type: Spontaneous
  Country: FR (occurrence: FR)
  Receive Date: 20220330
  Receipt Date: 20220330
  Transmission Date: 20220424
  Serious: Yes (Other)
  Sender: FDA-Public Use
  Company Number: FR-NOVARTISPH-NVSC2022FR071660

PATIENT
  Age: 71 Year
  Sex: Female

DRUGS (1)
  1. LETROZOLE [Suspect]
     Active Substance: LETROZOLE
     Indication: Product used for unknown indication
     Dosage: 2.5 MG, QD (1 TABLET 2,5) (START DATE: AROUND MAR 2020)
     Route: 065
     Dates: start: 202003

REACTIONS (1)
  - Neuropathy peripheral [Unknown]
